FAERS Safety Report 4514236-2 (Version None)
Quarter: 2004Q4

REPORT INFORMATION
  Report Type: 
  Country: None (occurrence: None)
  Receive Date: 20041124
  Receipt Date: 20041117
  Transmission Date: 20050328
  Serious: Yes (Hospitalization, Other)
  Sender: FDA-Public Use
  Company Number: DE_041114649

PATIENT
  Age: 77 Year
  Sex: Female

DRUGS (2)
  1. YENTREVE (DULOXETINE HYDROCHLORIDE) [Suspect]
     Indication: STRESS INCONTINENCE
     Dates: start: 20040901, end: 20041001
  2. RAMIPRIL [Concomitant]

REACTIONS (14)
  - APATHY [None]
  - BACTERIURIA [None]
  - COMA [None]
  - DEHYDRATION [None]
  - DISTURBANCE IN ATTENTION [None]
  - FATIGUE [None]
  - FEELING ABNORMAL [None]
  - GENERAL PHYSICAL HEALTH DETERIORATION [None]
  - HYPERTENSION [None]
  - HYPOKALAEMIA [None]
  - HYPONATRAEMIA [None]
  - OBESITY [None]
  - SOMNOLENCE [None]
  - URINARY TRACT INFECTION [None]
